FAERS Safety Report 10387923 (Version 1)
Quarter: 2014Q3

REPORT INFORMATION
  Report Type: Spontaneous
  Country: FR (occurrence: None)
  Receive Date: 20140813
  Receipt Date: 20140813
  Transmission Date: 20150326
  Serious: Yes (Hospitalization)
  Sender: FDA-Public Use
  Company Number: BD-2014-0053

PATIENT
  Age: 40 Year
  Sex: Male

DRUGS (1)
  1. MORPHINE SULFATE. [Suspect]
     Active Substance: MORPHINE SULFATE
     Indication: PRODUCT USED FOR UNKNOWN INDICATION

REACTIONS (9)
  - Toxicity to various agents [None]
  - Disorientation [None]
  - Emotional disorder [None]
  - Miosis [None]
  - Suicide attempt [None]
  - Altered state of consciousness [None]
  - Hypoxia [None]
  - Memory impairment [None]
  - Respiratory rate decreased [None]
